FAERS Safety Report 17458609 (Version 2)
Quarter: 2020Q1

REPORT INFORMATION
  Report Type: Spontaneous
  Country: DE (occurrence: DE)
  Receive Date: 20200225
  Receipt Date: 20200331
  Transmission Date: 20200409
  Serious: Yes (Other)
  Sender: FDA-Public Use
  Company Number: DE-JNJFOC-20200224640

PATIENT
  Age: 60 Year
  Sex: Male
  Weight: 96 kg

DRUGS (4)
  1. REMICADE [Suspect]
     Active Substance: INFLIXIMAB
     Indication: COLITIS ULCERATIVE
     Route: 042
     Dates: start: 2013
  2. BUDENOFALK [Concomitant]
     Active Substance: BUDESONIDE
     Route: 054
  3. SALOFALK                           /00747601/ [Concomitant]
     Active Substance: MESALAMINE
     Route: 054
  4. PENTASA [Concomitant]
     Active Substance: MESALAMINE
     Dosage: EXTEND

REACTIONS (1)
  - Malignant melanoma [Recovered/Resolved]

NARRATIVE: CASE EVENT DATE: 201912
